FAERS Safety Report 10932577 (Version 1)
Quarter: 2015Q1

REPORT INFORMATION
  Report Type: Spontaneous
  Country: US (occurrence: None)
  Receive Date: 20150319
  Receipt Date: 20150319
  Transmission Date: 20150721
  Serious: No
  Sender: FDA-Public Use
  Company Number: None

PATIENT
  Age: 26 Year
  Sex: Male
  Weight: 83.92 kg

DRUGS (4)
  1. PROBIOTICS [Concomitant]
     Active Substance: PROBIOTICS NOS
  2. FISH OIL [Concomitant]
     Active Substance: FISH OIL
  3. DIGESTIVE ENZYMS [Concomitant]
  4. MENS ROGAINE EXTRA STRENGTH [Suspect]
     Active Substance: MINOXIDIL
     Indication: ALOPECIA
     Dosage: FOAM 5% , TWICE DAILY, APPLIED TO A SURFACE, USUALLY THE SKIN
     Dates: start: 20130801, end: 20130805

REACTIONS (5)
  - Quality of life decreased [None]
  - Dry skin [None]
  - Seborrhoeic dermatitis [None]
  - Diffuse alopecia [None]
  - Inflammation [None]

NARRATIVE: CASE EVENT DATE: 20130801
